FAERS Safety Report 9242473 (Version 2)
Quarter: 2013Q2

REPORT INFORMATION
  Report Type: Report from Study
  Country: US (occurrence: US)
  Receive Date: 20130419
  Receipt Date: 20130520
  Transmission Date: 20140414
  Serious: Yes (Death, Hospitalization)
  Sender: FDA-Public Use
  Company Number: US-ROCHE-1216254

PATIENT
  Sex: Female
  Weight: 76.7 kg

DRUGS (5)
  1. XELODA [Suspect]
     Indication: BREAST CANCER
     Route: 065
     Dates: start: 201205
  2. XELODA [Suspect]
     Dosage: RESTARTED
     Route: 065
  3. CYCLOPHOSPHAMIDE [Concomitant]
     Dosage: DAILY
     Route: 065
  4. ABRAXANE [Concomitant]
     Route: 065
  5. MORPHINE [Concomitant]
     Indication: PAIN

REACTIONS (5)
  - Death [Fatal]
  - Fatigue [Unknown]
  - Streptococcal bacteraemia [Unknown]
  - Neutropenia [Unknown]
  - Disease progression [Unknown]
